FAERS Safety Report 8611209-5 (Version None)
Quarter: 2012Q3

REPORT INFORMATION
  Report Type: 
  Country: None (occurrence: None)
  Receive Date: 20120822
  Receipt Date: 20120815
  Transmission Date: 20120928
  Serious: Yes (Other)
  Sender: FDA-Public Use
  Company Number: US-JNJFOC-20120513369

PATIENT
  Sex: Male
  Weight: 84.82 kg

DRUGS (9)
  1. JANUVIA [Concomitant]
     Indication: DIABETES MELLITUS
     Dosage: DOSE REPORTED AS ^100^ AND DATE REPORTED AS ^{ 6 MOS^
  2. CYMBALTA [Concomitant]
     Dosage: DOSE REPORTED AS ^60^
  3. METFORMIN [Concomitant]
     Indication: DIABETES MELLITUS
     Dosage: DOSE REPORTED AS ^1000^
  4. METOPROLOL TARTRATE [Concomitant]
     Indication: CORONARY ARTERY DISEASE
     Dosage: DOSE REPORTED AS ^100^
  5. XARELTO [Suspect]
     Indication: ATRIAL FLUTTER
     Route: 048
     Dates: start: 20120404, end: 20120516
  6. XARELTO [Suspect]
     Indication: ATRIAL FIBRILLATION
     Route: 048
     Dates: start: 20120404, end: 20120516
  7. RAPAFLO [Concomitant]
     Indication: BENIGN PROSTATIC HYPERPLASIA
  8. SIMVASTATIN [Concomitant]
     Indication: DYSLIPIDAEMIA
     Dosage: DOSE REPORTED AS ^10^
  9. XARELTO [Suspect]
     Indication: CEREBROVASCULAR ACCIDENT PROPHYLAXIS
     Route: 048
     Dates: start: 20120404, end: 20120516

REACTIONS (1)
  - INTRACARDIAC THROMBUS [None]
